FAERS Safety Report 9209971 (Version 1)
Quarter: 2013Q1

REPORT INFORMATION
  Report Type: Spontaneous
  Country: US (occurrence: None)
  Receive Date: 20120820
  Receipt Date: 20120820
  Transmission Date: 20140127
  Serious: No
  Sender: FDA-Public Use
  Company Number: 1000030996

PATIENT
  Age: 52 Year
  Sex: Female

DRUGS (13)
  1. VIIBRYD [Suspect]
     Indication: DEPRESSION
     Route: 048
     Dates: start: 20120508, end: 20120510
  2. PRILOSEC(OMEPRAZO-LE)(OMEPRAZOLE) [Concomitant]
  3. COMBIVENT (IPRATRO-PIUM,ALBUTEROL)(IPRATROPIUM,ALBUTEROL) [Concomitant]
  4. MEVACOR(LOVASTATIN)(LOVASTATIN) [Concomitant]
  5. PREMARIN(ESTROGENS CONJUGATED)(ESTROGENS CONJUGATED) [Concomitant]
  6. VERAPAMIL(VERAPAMIL)(VERAPAMIL) [Concomitant]
  7. SINGULAIR [Concomitant]
  8. ALBUTEROL(ALBUTEROL)(ALBUTEROL) [Concomitant]
  9. AMBIEN(ZOLPIDEM TARTRATE)(ZOLPIDEM TARTRATE) [Concomitant]
  10. CLONAZEPAM(CLONAZEPAM)(CLONAZEPAM) [Concomitant]
  11. ZESTRORETIC(LISINOPRIL,HYDROCHLOROTHIAZIDE)(LISINOPRIL,HYDROCHLOROTHIAZINE) [Concomitant]
  12. FLOVEN(FLUCTICASONE PROPIONATE)(FLUTICASONE PROPIONATE) [Concomitant]
  13. DEPLIN(L-METHYLFOLATE)(L-METHYLFOLATE) [Concomitant]

REACTIONS (1)
  - Hallucination, visual [None]
